FAERS Safety Report 4695729-4 (Version None)
Quarter: 2005Q2

REPORT INFORMATION
  Report Type: 
  Country: None (occurrence: None)
  Receive Date: 20050615
  Receipt Date: 20050615
  Transmission Date: 20051028
  Serious: Yes (Other)
  Sender: FDA-Public Use
  Company Number: None

PATIENT
  Age: 23 Year
  Sex: Female

DRUGS (1)
  1. TUBERSOL [Suspect]
     Indication: TUBERCULIN TEST
     Dosage: .1ML (5US UNITS) INTRADERMAL
     Route: 023

REACTIONS (3)
  - INJECTION SITE ERYTHEMA [None]
  - RASH GENERALISED [None]
  - RASH PRURITIC [None]
